FAERS Safety Report 5409481-8 (Version None)
Quarter: 2007Q3

REPORT INFORMATION
  Report Type: 
  Country: None (occurrence: None)
  Receive Date: 20070807
  Receipt Date: 20070807
  Transmission Date: 20080115
  Serious: No
  Sender: FDA-Public Use
  Company Number: None

PATIENT
  Age: 37 Year
  Sex: Male

DRUGS (2)
  1. MEPERIDINE HCL [Suspect]
     Dosage: 50MG UNKNOWN IV
     Route: 042
     Dates: start: 20070509, end: 20070509
  2. MIDAZOLAM HCL [Suspect]
     Dosage: 3 MG UNKNOWN IV
     Route: 042
     Dates: start: 20070509, end: 20070509

REACTIONS (2)
  - ANAPHYLACTIC REACTION [None]
  - ANGIOEDEMA [None]
